FAERS Safety Report 8798932 (Version 1)
Quarter: 2012Q4

REPORT INFORMATION
  Report Type: 
  Country: DE (occurrence: DE)
  Receive Date: 20120920
  Receipt Date: 20120920
  Transmission Date: 20130627
  Serious: Yes (Congenital Anomaly, Other)
  Sender: FDA-Public Use
  Company Number: DE-TEVA-357626GER

PATIENT
  Age: 0 Year
  Sex: Female

DRUGS (4)
  1. LAMOTRIGINE [Suspect]
     Route: 064
  2. VIMPAT [Suspect]
     Route: 064
  3. ZEBINIX [Concomitant]
     Route: 064
  4. FOLIO FORTE [Concomitant]
     Route: 064

REACTIONS (4)
  - Atrial septal defect [Recovered/Resolved]
  - Directional Doppler flow tests abnormal [Recovered/Resolved]
  - Small for dates baby [Unknown]
  - Maternal drugs affecting foetus [None]
